FAERS Safety Report 23100677 (Version 1)
Quarter: 2023Q4

REPORT INFORMATION
  Report Type: Spontaneous
  Country: US (occurrence: None)
  Receive Date: 20231020
  Receipt Date: 20231020
  Transmission Date: 20240110
  Serious: Yes (Hospitalization)
  Sender: FDA-Public Use
  Company Number: None

PATIENT
  Sex: Male

DRUGS (6)
  1. VIGABATRIN [Suspect]
     Active Substance: VIGABATRIN
     Indication: Cystic fibrosis
     Dosage: FREQUENCY : TWICE A DAY;?
     Route: 048
     Dates: start: 20171222
  2. ALBUTEROL [Concomitant]
     Active Substance: ALBUTEROL
  3. DEPAKOTE SPR [Concomitant]
  4. MELATONIN [Concomitant]
     Active Substance: MELATONIN
  5. PULMICORT SUS [Concomitant]
  6. TOBRAMYCIN [Concomitant]
     Active Substance: TOBRAMYCIN

REACTIONS (1)
  - Bronchitis [None]
